FAERS Safety Report 9122299 (Version 1)
Quarter: 2013Q1

REPORT INFORMATION
  Report Type: Report from Study
  Country: CA (occurrence: CA)
  Receive Date: 20130227
  Receipt Date: 20130227
  Transmission Date: 20140127
  Serious: Yes (Other)
  Sender: FDA-Public Use
  Company Number: CA-JNJFOC-20130212901

PATIENT
  Age: 65 None
  Sex: Female
  Weight: 84.8 kg

DRUGS (2)
  1. REMICADE [Suspect]
     Indication: CROHN^S DISEASE
     Route: 042
     Dates: start: 20120717
  2. METHOTREXATE [Concomitant]
     Route: 065

REACTIONS (2)
  - Hernia repair [Recovered/Resolved]
  - Pyrexia [Recovered/Resolved]
